FAERS Safety Report 16940780 (Version 2)
Quarter: 2019Q4

REPORT INFORMATION
  Report Type: Spontaneous
  Country: US (occurrence: US)
  Receive Date: 20191021
  Receipt Date: 20191028
  Transmission Date: 20200122
  Serious: Yes (Other)
  Sender: FDA-Public Use
  Company Number: US-MYLANLABS-2019M1098067

PATIENT
  Sex: Male

DRUGS (1)
  1. FEBUXOSTAT. [Suspect]
     Active Substance: FEBUXOSTAT
     Indication: HYPERURICAEMIA
     Dosage: 80 MILLIGRAM, QD
     Dates: start: 20190801, end: 2019

REACTIONS (7)
  - Blood uric acid increased [Not Recovered/Not Resolved]
  - Hypertension [Recovered/Resolved]
  - Intentional dose omission [Unknown]
  - Skin odour abnormal [Not Recovered/Not Resolved]
  - Angina pectoris [Recovered/Resolved]
  - Tension [Not Recovered/Not Resolved]
  - Flushing [Not Recovered/Not Resolved]

NARRATIVE: CASE EVENT DATE: 2019
